FAERS Safety Report 24462556 (Version 1)
Quarter: 2024Q4

REPORT INFORMATION
  Report Type: Spontaneous
  Country: ES (occurrence: ES)
  Receive Date: 20241018
  Receipt Date: 20241018
  Transmission Date: 20250115
  Serious: Yes (Other)
  Sender: RANBAXY
  Company Number: ES-SUN PHARMACEUTICAL INDUSTRIES LTD-2024R1-473759

PATIENT
  Age: 42 Year
  Sex: Female

DRUGS (1)
  1. LITHIUM [Suspect]
     Active Substance: LITHIUM
     Indication: Bipolar I disorder
     Dosage: UNK
     Route: 065

REACTIONS (4)
  - Premature rupture of membranes [Unknown]
  - Nephrogenic diabetes insipidus [Unknown]
  - Exposure during pregnancy [Unknown]
  - Premature delivery [Unknown]
